FAERS Safety Report 10723127 (Version 2)
Quarter: 2015Q1

REPORT INFORMATION
  Report Type: Spontaneous
  Country: CZ (occurrence: CZ)
  Receive Date: 20150120
  Receipt Date: 20150213
  Transmission Date: 20150721
  Serious: Yes (Hospitalization)
  Sender: FDA-Public Use
  Company Number: CZ-SA-2015SA004379

PATIENT
  Age: 76 Year
  Sex: Female
  Weight: 62 kg

DRUGS (6)
  1. LANTUS SOLOSTAR [Suspect]
     Active Substance: INSULIN GLARGINE
     Route: 065
  2. SOLOSTAR [Concomitant]
     Active Substance: DEVICE
     Indication: DEVICE THERAPY
  3. GODASAL [Concomitant]
  4. THYROZOL [Concomitant]
     Active Substance: METHIMAZOLE
     Dosage: STRENGTH: 10 MG
  5. CALCICHEW [Concomitant]
     Active Substance: CALCIUM CARBONATE
  6. MINIDIAB [Concomitant]
     Active Substance: GLIPIZIDE

REACTIONS (2)
  - Spinal pain [Recovering/Resolving]
  - Condition aggravated [Unknown]

NARRATIVE: CASE EVENT DATE: 20140926
